FAERS Safety Report 11575976 (Version 7)
Quarter: 2016Q1

REPORT INFORMATION
  Report Type: Spontaneous
  Country: GB (occurrence: GB)
  Receive Date: 20150930
  Receipt Date: 20160304
  Transmission Date: 20160525
  Serious: Yes (Death, Hospitalization)
  Sender: FDA-Public Use
  Company Number: GB-009507513-1506GBR007315

PATIENT
  Age: 69 Year
  Sex: Female

DRUGS (2)
  1. ERTAPENEM SODIUM [Suspect]
     Active Substance: ERTAPENEM SODIUM
     Dosage: 1 G, DAILY
     Route: 042
     Dates: start: 20150602, end: 20151217
  2. TEICOPLANIN [Concomitant]
     Active Substance: TEICOPLANIN
     Dosage: UNK
     Route: 042
     Dates: end: 20151216

REACTIONS (16)
  - Abdominal abscess [Unknown]
  - Fall [Unknown]
  - Eye swelling [Unknown]
  - Flatulence [Unknown]
  - Dysgeusia [Unknown]
  - Abdominal discomfort [Unknown]
  - Dyspnoea exertional [Unknown]
  - Death [Fatal]
  - Defaecation urgency [Unknown]
  - Transfusion [Unknown]
  - Stoma site extravasation [Unknown]
  - Fatigue [Unknown]
  - Diarrhoea [Unknown]
  - Decreased appetite [Unknown]
  - Muscular weakness [Unknown]
  - Abdominal distension [Unknown]

NARRATIVE: CASE EVENT DATE: 2015
